FAERS Safety Report 9868468 (Version 5)
Quarter: 2020Q3

REPORT INFORMATION
  Report Type: Report from Study
  Country: FR (occurrence: FR)
  Receive Date: 20140204
  Receipt Date: 20140708
  Transmission Date: 20201104
  Serious: Yes (Hospitalization, Other)
  Sender: FDA-Public Use
  Company Number: PHHY2014FR012602

PATIENT
  Age: 33 Year
  Sex: Male

DRUGS (32)
  1. OXALIPLATIN. [Suspect]
     Active Substance: OXALIPLATIN
     Indication: GASTROOESOPHAGEAL CANCER
     Dosage: 130 MG, BIW
     Route: 042
     Dates: start: 20131022
  2. DOLIPRANE [Concomitant]
     Active Substance: ACETAMINOPHEN
     Indication: ABDOMINAL PAIN
     Dosage: 1 G
     Route: 048
     Dates: start: 2009
  3. ZOPHREN [Concomitant]
     Active Substance: ONDANSETRON
     Dosage: 8 MG
     Route: 042
     Dates: start: 20131022
  4. PRIMPERAN [Concomitant]
     Active Substance: METOCLOPRAMIDE HYDROCHLORIDE
     Indication: NAUSEA
     Dosage: 40 MG
     Route: 048
     Dates: start: 20131122
  5. 5?FLUOROURACIL [Suspect]
     Active Substance: FLUOROURACIL
     Dosage: 3600 MG, BIW
     Route: 042
     Dates: start: 20131022
  6. 5?FLUOROURACIL [Suspect]
     Active Substance: FLUOROURACIL
     Route: 040
     Dates: start: 20131106
  7. ONARTUZUMAB. [Suspect]
     Active Substance: ONARTUZUMAB
     Route: 042
     Dates: start: 20131106
  8. LANSOYL [Concomitant]
     Active Substance: MINERAL OIL
     Indication: CONSTIPATION
     Dosage: 15 ML
     Route: 048
     Dates: start: 20131003
  9. SKENAN [Concomitant]
     Active Substance: MORPHINE SULFATE
     Indication: ABDOMINAL PAIN
     Dosage: 30 MG
     Route: 048
     Dates: start: 20131106
  10. FORLAX [Concomitant]
     Active Substance: POLYETHYLENE GLYCOL 4000
     Indication: CONSTIPATION
     Dosage: 10 G
     Route: 048
     Dates: start: 20131108
  11. MICROLAX [Concomitant]
     Indication: CONSTIPATION
     Dosage: 5.9 G
     Route: 048
     Dates: start: 20131225
  12. LOVENOX [Concomitant]
     Active Substance: ENOXAPARIN SODIUM
     Dosage: 0.4 ML
     Route: 058
     Dates: start: 20131120
  13. MOPRAL [Concomitant]
     Active Substance: OMEPRAZOLE
     Indication: GASTRIC ULCER
     Dosage: 20 MG, UNK
     Route: 048
     Dates: start: 20131122, end: 20131127
  14. ACTISKENAN [Concomitant]
     Active Substance: MORPHINE SULFATE
     Indication: ABDOMINAL PAIN
     Dosage: 10 MG
     Route: 048
     Dates: start: 20131106
  15. FOLINIC ACID [Suspect]
     Active Substance: LEUCOVORIN
     Indication: GASTROOESOPHAGEAL CANCER
     Dosage: 600 MG, BIW
     Route: 042
     Dates: start: 20131022
  16. FOLINIC ACID [Suspect]
     Active Substance: LEUCOVORIN
     Route: 042
     Dates: start: 20131106
  17. ZARZIO [Concomitant]
     Active Substance: FILGRASTIM
     Indication: NEUTROPENIA
     Dosage: 30 UG
     Route: 042
     Dates: start: 20131229
  18. CACIT VITAMINE D3 [Concomitant]
     Active Substance: CALCIUM CARBONATE\CHOLECALCIFEROL
     Indication: HYPOCALCAEMIA
     Dates: start: 20140122
  19. TAZOCILLINE [Concomitant]
     Active Substance: PIPERACILLIN SODIUM\TAZOBACTAM SODIUM
  20. 5?FLUOROURACIL [Suspect]
     Active Substance: FLUOROURACIL
     Route: 042
     Dates: start: 20131108
  21. DEBRIDAT [Concomitant]
     Active Substance: TRIMEBUTINE MALEATE
     Indication: CONSTIPATION
     Dosage: 200 MG
     Route: 042
     Dates: start: 20131003
  22. VITAMIN B12 [Concomitant]
     Active Substance: CYANOCOBALAMIN
     Indication: GASTRECTOMY
     Dosage: 1 MG
     Route: 030
     Dates: start: 201001
  23. CEFTRIAXONE. [Concomitant]
     Active Substance: CEFTRIAXONE
     Indication: ENTEROBACTER INFECTION
     Dosage: 1 G, UNK
     Route: 042
     Dates: start: 20131129, end: 20131208
  24. OMEPRAZOLE. [Concomitant]
     Active Substance: OMEPRAZOLE
     Indication: GASTRECTOMY
     Dosage: 20 MG
     Route: 048
     Dates: start: 2009
  25. DUPHALAC [Concomitant]
     Active Substance: LACTULOSE
     Indication: CONSTIPATION
     Dosage: 30 ML
     Route: 048
     Dates: start: 20131003
  26. XANAX [Concomitant]
     Active Substance: ALPRAZOLAM
     Indication: ANXIETY
     Dosage: 0.25 MG
     Route: 048
     Dates: start: 20140109
  27. SOLU?MEDROL [Concomitant]
     Active Substance: METHYLPREDNISOLONE SODIUM SUCCINATE
     Dosage: 120 MG
     Route: 042
     Dates: start: 20131022
  28. 5?FLUOROURACIL [Suspect]
     Active Substance: FLUOROURACIL
     Indication: GASTROOESOPHAGEAL CANCER
     Dosage: 600 MG, BIW
     Route: 040
     Dates: start: 20131022
  29. TRAMADOL. [Concomitant]
     Active Substance: TRAMADOL
     Indication: ABDOMINAL PAIN
     Dosage: 50 MG
     Route: 048
     Dates: start: 20131003
  30. OXALIPLATIN. [Suspect]
     Active Substance: OXALIPLATIN
     Route: 042
     Dates: start: 20131106
  31. ONARTUZUMAB. [Suspect]
     Active Substance: ONARTUZUMAB
     Indication: GASTROOESOPHAGEAL CANCER
     Route: 042
     Dates: start: 20131022
  32. VANCOMYCINE [Concomitant]
     Active Substance: VANCOMYCIN
     Indication: ENTEROBACTER INFECTION
     Route: 042
     Dates: start: 20131201, end: 20131208

REACTIONS (2)
  - Abdominal pain [Not Recovered/Not Resolved]
  - Lipase increased [Recovered/Resolved]

NARRATIVE: CASE EVENT DATE: 20131118
